FAERS Safety Report 7797759-2 (Version None)
Quarter: 2011Q4

REPORT INFORMATION
  Report Type: 
  Country: None (occurrence: None)
  Receive Date: 20111005
  Receipt Date: 20111004
  Transmission Date: 20120403
  Serious: Yes (Death)
  Sender: FDA-Public Use
  Company Number: PHHY2011US68047

PATIENT
  Sex: Female
  Weight: 133 kg

DRUGS (3)
  1. RECLAST [Suspect]
     Dosage: 5 MG/100ML ANNUALLY
     Route: 042
     Dates: start: 20090803
  2. RECLAST [Suspect]
     Indication: OSTEOPOROSIS
     Dosage: 5 MG/100ML ANNUALLY
     Route: 042
     Dates: start: 20080731
  3. RECLAST [Suspect]
     Dosage: 5 MG/100ML ANNUALLY
     Route: 042
     Dates: start: 20100804

REACTIONS (1)
  - DEATH [None]
